FAERS Safety Report 8884607 (Version 1)
Quarter: 2012Q4

REPORT INFORMATION
  Report Type: 
  Country: ES (occurrence: ES)
  Receive Date: 20121102
  Receipt Date: 20121102
  Transmission Date: 20130627
  Serious: Yes (Hospitalization)
  Sender: FDA-Public Use
  Company Number: PHHY2012ES091495

PATIENT
  Age: 45 Year
  Sex: Female

DRUGS (4)
  1. GILENYA [Suspect]
     Indication: MULTIPLE SCLEROSIS
     Dosage: 0.25 mg, QD
     Dates: start: 20121010
  2. SINGULAIR [Concomitant]
     Dosage: 10 mg, QD
     Route: 048
  3. GABAPENTIN [Concomitant]
     Dosage: 900 mg, QD
     Route: 048
  4. NOBRITOL [Concomitant]
     Dosage: 5 mg, QD
     Route: 048

REACTIONS (4)
  - Optic neuritis [Not Recovered/Not Resolved]
  - Visual impairment [Not Recovered/Not Resolved]
  - Eye pruritus [Not Recovered/Not Resolved]
  - Incorrect dose administered [Unknown]
